FAERS Safety Report 16564599 (Version 2)
Quarter: 2019Q4

REPORT INFORMATION
  Report Type: Report from Study
  Country: US (occurrence: US)
  Receive Date: 20190712
  Receipt Date: 20191021
  Transmission Date: 20200122
  Serious: Yes (Other)
  Sender: FDA-Public Use
  Company Number: US-JNJFOC-20190215201

PATIENT
  Age: 81 Year
  Sex: Female

DRUGS (22)
  1. IMBRUVICA [Suspect]
     Active Substance: IBRUTINIB
     Indication: CHRONIC LYMPHOCYTIC LEUKAEMIA
     Route: 048
     Dates: start: 2017
  2. IMBRUVICA [Suspect]
     Active Substance: IBRUTINIB
     Route: 048
     Dates: start: 20170209, end: 20180518
  3. POLYETHYLENE GLYCOL [Concomitant]
     Active Substance: POLYETHYLENE GLYCOLS
  4. TREANDA [Concomitant]
     Active Substance: BENDAMUSTINE HYDROCHLORIDE
  5. VITAMIN B [Concomitant]
     Active Substance: VITAMIN B
  6. RITUXAN [Concomitant]
     Active Substance: RITUXIMAB
  7. ACYCLOVIR. [Concomitant]
     Active Substance: ACYCLOVIR
  8. PERIDEX                            /00016001/ [Concomitant]
     Active Substance: DEXAMETHASONE
  9. IMBRUVICA [Suspect]
     Active Substance: IBRUTINIB
     Route: 048
     Dates: start: 20180520
  10. IMBRUVICA [Suspect]
     Active Substance: IBRUTINIB
     Indication: CHRONIC LYMPHOCYTIC LEUKAEMIA
     Route: 048
     Dates: start: 20180519, end: 20181227
  11. TYLENOL [Concomitant]
     Active Substance: ACETAMINOPHEN
  12. IMBRUVICA [Suspect]
     Active Substance: IBRUTINIB
     Route: 048
     Dates: start: 20170208, end: 2018
  13. IMBRUVICA [Suspect]
     Active Substance: IBRUTINIB
     Route: 048
     Dates: start: 20180228, end: 20190208
  14. IMBRUVICA [Suspect]
     Active Substance: IBRUTINIB
     Route: 048
     Dates: start: 20181101
  15. IMBRUVICA [Suspect]
     Active Substance: IBRUTINIB
     Dosage: 280 MG, QD
     Route: 048
     Dates: start: 20190209
  16. VITAMIN D [Concomitant]
     Active Substance: VITAMIN D NOS
  17. ESTRACE [Concomitant]
     Active Substance: ESTRADIOL
  18. LIVALO [Concomitant]
     Active Substance: PITAVASTATIN CALCIUM
  19. ATENOLOL. [Concomitant]
     Active Substance: ATENOLOL
     Dosage: 50 MG, BID
  20. ASPIRIN. [Concomitant]
     Active Substance: ASPIRIN
  21. CICLOPIROX. [Concomitant]
     Active Substance: CICLOPIROX
  22. BENICAR [Concomitant]
     Active Substance: OLMESARTAN MEDOXOMIL
     Dosage: 10 MG, BID

REACTIONS (11)
  - Atrial fibrillation [Unknown]
  - Memory impairment [Unknown]
  - Rhinorrhoea [Not Recovered/Not Resolved]
  - Injection site bruising [Recovering/Resolving]
  - Cataract [Recovered/Resolved]
  - Dry skin [Unknown]
  - Asthenia [Not Recovered/Not Resolved]
  - Headache [Not Recovered/Not Resolved]
  - Cystitis [Unknown]
  - Insomnia [Recovering/Resolving]
  - Blood glucose increased [Recovering/Resolving]

NARRATIVE: CASE EVENT DATE: 201903
